FAERS Safety Report 4620733-1 (Version None)
Quarter: 2005Q2

REPORT INFORMATION
  Report Type: 
  Country: None (occurrence: None)
  Receive Date: 20050321
  Receipt Date: 20040625
  Transmission Date: 20051028
  Serious: Yes (Other)
  Sender: FDA-Public Use
  Company Number: 2004-06-2085

PATIENT
  Age: 49 Year
  Sex: Male

DRUGS (2)
  1. PEG-INTRON [Suspect]
     Indication: HEPATITIS C
     Dosage: SUBCUTANEOUS
     Route: 058
     Dates: end: 20040611
  2. CLOZAPINE [Suspect]
     Dosage: 750 MG QD ORAL
     Route: 048
     Dates: start: 20021201, end: 20040601

REACTIONS (1)
  - NEUTROPENIA [None]
